FAERS Safety Report 7506513-8 (Version None)
Quarter: 2011Q2

REPORT INFORMATION
  Report Type: 
  Country: None (occurrence: None)
  Receive Date: 20110526
  Receipt Date: 20110512
  Transmission Date: 20111010
  Serious: Yes (Hospitalization)
  Sender: FDA-Public Use
  Company Number: US-JNJFOC-20110308223

PATIENT
  Sex: Female
  Weight: 52.3 kg

DRUGS (8)
  1. INFLIXIMAB, RECOMBINANT [Suspect]
     Route: 042
     Dates: start: 20090106
  2. INFLIXIMAB, RECOMBINANT [Suspect]
     Route: 042
     Dates: start: 20090909
  3. PROTONIX [Concomitant]
  4. INFLIXIMAB, RECOMBINANT [Suspect]
     Indication: CROHN'S DISEASE
     Route: 042
     Dates: start: 20090304
  5. LEVSIN [Concomitant]
  6. INFLIXIMAB, RECOMBINANT [Suspect]
     Route: 042
     Dates: start: 20100113
  7. BUDESONIDE [Concomitant]
  8. LEXAPRO [Concomitant]

REACTIONS (1)
  - CROHN'S DISEASE [None]
